FAERS Safety Report 17903587 (Version 1)
Quarter: 2020Q2

REPORT INFORMATION
  Report Type: Spontaneous
  Country: US (occurrence: US)
  Receive Date: 20200616
  Receipt Date: 20200616
  Transmission Date: 20200714
  Serious: Yes (Death)
  Sender: FDA-Public Use
  Company Number: US-PURDUE-USA-2020-0154466

PATIENT
  Age: 65 Year
  Sex: Female

DRUGS (2)
  1. OXYCODONE HCL CR TABLETS (SIMILAR TO NDA 22-272) [Suspect]
     Active Substance: OXYCODONE HYDROCHLORIDE
     Indication: SYSTEMIC LUPUS ERYTHEMATOSUS
     Route: 048
  2. FENTANYL. [Suspect]
     Active Substance: FENTANYL
     Indication: SYSTEMIC LUPUS ERYTHEMATOSUS
     Dosage: 100 MG, UNK
     Route: 062

REACTIONS (1)
  - Death [Fatal]

NARRATIVE: CASE EVENT DATE: 20170320
